FAERS Safety Report 24948924 (Version 1)
Quarter: 2025Q1

REPORT INFORMATION
  Report Type: Spontaneous
  Country: FR (occurrence: FR)
  Receive Date: 20250210
  Receipt Date: 20250210
  Transmission Date: 20250408
  Serious: Yes (Hospitalization, Other)
  Sender: PFIZER
  Company Number: FR-ASTRAZENECA-202410GLO026074FR

PATIENT
  Age: 86 Year
  Sex: Female
  Weight: 58.3 kg

DRUGS (9)
  1. RITUXIMAB [Suspect]
     Active Substance: RITUXIMAB
     Indication: Sjogren^s syndrome
     Route: 042
     Dates: start: 202301
  2. RITUXIMAB [Suspect]
     Active Substance: RITUXIMAB
     Route: 042
     Dates: start: 20240823, end: 20240906
  3. PREDNISOLONE [Suspect]
     Active Substance: PREDNISOLONE
     Route: 048
     Dates: start: 20240820
  4. PREDNISOLONE [Suspect]
     Active Substance: PREDNISOLONE
     Route: 048
     Dates: start: 20240825
  5. CANDESARTAN [Suspect]
     Active Substance: CANDESARTAN
     Route: 048
  6. OXAZEPAM [Concomitant]
     Active Substance: OXAZEPAM
  7. METEOSPASMYL (ALVERINE CITRATE\DIMETHICONE) [Concomitant]
     Active Substance: ALVERINE CITRATE\DIMETHICONE
  8. TOVIAZ [Concomitant]
     Active Substance: FESOTERODINE FUMARATE
  9. KARDEGIC [Concomitant]
     Active Substance: ASPIRIN DL-LYSINE

REACTIONS (3)
  - Respiratory disorder [Unknown]
  - Pneumocystis jirovecii pneumonia [Recovering/Resolving]
  - Off label use [Unknown]

NARRATIVE: CASE EVENT DATE: 20230101
